FAERS Safety Report 5718060-4 (Version None)
Quarter: 2008Q2

REPORT INFORMATION
  Report Type: 
  Country: None (occurrence: None)
  Receive Date: 20080425
  Receipt Date: 20080422
  Transmission Date: 20081010
  Serious: Yes (Death, Other)
  Sender: FDA-Public Use
  Company Number: US-ABBOTT-07P-163-0416262-00

PATIENT
  Sex: Female
  Weight: 83.99 kg

DRUGS (7)
  1. DILAUDID [Suspect]
     Indication: PROCEDURAL PAIN
     Route: 040
     Dates: start: 20040311, end: 20040311
  2. TYLOX [Suspect]
     Indication: PROCEDURAL PAIN
     Route: 048
     Dates: start: 20040311, end: 20040311
  3. DIPHENHYDRAMINE HYDROCHLORIDE [Suspect]
     Indication: DRUG USE FOR UNKNOWN INDICATION
     Dates: start: 20040311, end: 20040311
  4. ANESTHETICS, GENERAL [Suspect]
     Indication: DRUG USE FOR UNKNOWN INDICATION
     Dates: start: 20040311, end: 20040311
  5. METOPROLOL TARTRATE [Concomitant]
     Indication: HYPERTENSION
     Dates: end: 20040301
  6. AMLODIPINE [Concomitant]
     Indication: HYPERTENSION
     Dates: end: 20040301
  7. ACETYLSALICYLIC ACID SRT [Concomitant]
     Indication: CORONARY ARTERY DISEASE
     Dates: end: 20040301

REACTIONS (4)
  - ANAPHYLACTIC SHOCK [None]
  - ANGIOEDEMA [None]
  - CARDIO-RESPIRATORY ARREST [None]
  - DRUG TOXICITY [None]
